FAERS Safety Report 8214603-X (Version None)
Quarter: 2012Q1

REPORT INFORMATION
  Report Type: 
  Country: None (occurrence: None)
  Receive Date: 20120228
  Receipt Date: 20110324
  Transmission Date: 20120608
  Serious: Yes (Hospitalization)
  Sender: FDA-Public Use
  Company Number: RB-24625-2011

PATIENT
  Sex: Female

DRUGS (3)
  1. SUBOXONE [Suspect]
     Indication: DEPRESSION
     Dosage: (SUBLINGUAL)
     Route: 060
     Dates: start: 20100101, end: 20110320
  2. SUBOXONE [Suspect]
     Indication: DRUG DEPENDENCE
     Dosage: (SUBLINGUAL), (VARIOUS TAPERING DOSES SUBLINGUAL)
     Route: 060
     Dates: start: 20090101
  3. SUBOXONE [Suspect]
     Indication: DRUG DEPENDENCE
     Dosage: (SUBLINGUAL), (VARIOUS TAPERING DOSES SUBLINGUAL)
     Route: 060
     Dates: end: 20100101

REACTIONS (7)
  - VIRAL INFECTION [None]
  - HEART RATE DECREASED [None]
  - DRUG WITHDRAWAL SYNDROME [None]
  - KIDNEY INFECTION [None]
  - HYPOTENSION [None]
  - PNEUMONIA [None]
  - PYREXIA [None]
